FAERS Safety Report 7040060-5 (Version None)
Quarter: 2010Q4

REPORT INFORMATION
  Report Type: 
  Country: None (occurrence: None)
  Receive Date: 20101012
  Receipt Date: 20100928
  Transmission Date: 20110411
  Serious: Yes (Other)
  Sender: FDA-Public Use
  Company Number: PHHY2010FR64584

PATIENT
  Age: 64 Year
  Sex: Male

DRUGS (5)
  1. RASILEZ [Suspect]
     Indication: HYPERTENSION
     Dosage: 1 DF, QD
     Route: 048
     Dates: start: 20100501, end: 20100623
  2. RASILEZ HCT [Suspect]
     Dosage: 1 DF, QD
     Route: 048
     Dates: start: 20100623, end: 20100819
  3. ACEBUTOLOL [Concomitant]
  4. ZOCOR [Concomitant]
  5. KARDEGIC [Concomitant]
     Dosage: UNK

REACTIONS (1)
  - HYPOKALAEMIA [None]
